FAERS Safety Report 9154948 (Version 1)
Quarter: 2013Q1

REPORT INFORMATION
  Report Type: Spontaneous
  Country: CN (occurrence: None)
  Receive Date: 20130208
  Receipt Date: 20130208
  Transmission Date: 20140127
  Serious: Yes (Other)
  Sender: FDA-Public Use
  Company Number: FD201300288

PATIENT
  Age: 10 Month
  Sex: Male

DRUGS (1)
  1. LEVETIRACETAM (MANUFACTURER UNKNOWN) (LEVETIRACETAM) (LEVETIRACETAM) [Suspect]
     Indication: POST-TRAUMATIC EPILEPSY

REACTIONS (1)
  - Blood alkaline phosphatase increased [None]
